FAERS Safety Report 13366870 (Version 2)
Quarter: 2017Q1

REPORT INFORMATION
  Report Type: Report from Study
  Country: BR (occurrence: BR)
  Receive Date: 20170324
  Receipt Date: 20170329
  Transmission Date: 20170429
  Serious: Yes (Hospitalization)
  Sender: FDA-Public Use
  Company Number: BR-AMGEN-BRANI2017042345

PATIENT
  Age: 13 Year
  Sex: Male
  Weight: 42 kg

DRUGS (1)
  1. BLINATUMOMAB [Suspect]
     Active Substance: BLINATUMOMAB
     Indication: B PRECURSOR TYPE ACUTE LEUKAEMIA
     Dosage: 5 MUG/M2, CONTINUING
     Route: 065
     Dates: start: 20161205, end: 20170214

REACTIONS (1)
  - Acute lymphocytic leukaemia recurrent [Not Recovered/Not Resolved]

NARRATIVE: CASE EVENT DATE: 20170313
